FAERS Safety Report 23268475 (Version 10)
Quarter: 2024Q2

REPORT INFORMATION
  Report Type: Report from Study
  Country: AR (occurrence: AR)
  Receive Date: 20231206
  Receipt Date: 20240615
  Transmission Date: 20240716
  Serious: Yes (Other)
  Sender: FDA-Public Use
  Company Number: AR-002147023-NVSC2020AR324730

PATIENT
  Age: 72 Year
  Sex: Female

DRUGS (6)
  1. COSENTYX [Suspect]
     Active Substance: SECUKINUMAB
     Indication: Psoriasis
     Dosage: 300 MG, QMO
     Route: 058
     Dates: start: 20190731, end: 20210101
  2. COSENTYX [Suspect]
     Active Substance: SECUKINUMAB
     Dosage: 300 MG, QMO
     Route: 058
     Dates: start: 20221126, end: 20230730
  3. COSENTYX [Suspect]
     Active Substance: SECUKINUMAB
     Dosage: 300 MG, QW
     Route: 058
     Dates: start: 20240514
  4. COSENTYX [Suspect]
     Active Substance: SECUKINUMAB
     Dosage: 150 MG, QMO
     Route: 058
     Dates: start: 20221126
  5. VALSARTAN [Suspect]
     Active Substance: VALSARTAN
     Indication: Hypertension
     Dosage: 80 MG, BID
     Route: 065
  6. ALLOPURINOL [Concomitant]
     Active Substance: ALLOPURINOL
     Indication: Gout
     Dosage: UNK
     Route: 065

REACTIONS (20)
  - Erysipelas [Unknown]
  - Pyrexia [Recovered/Resolved]
  - Erythema [Unknown]
  - Rash [Unknown]
  - Pain [Not Recovered/Not Resolved]
  - Peripheral swelling [Unknown]
  - Limb discomfort [Unknown]
  - Cognitive disorder [Unknown]
  - Psoriasis [Unknown]
  - Fear [Unknown]
  - Renal disorder [Unknown]
  - Memory impairment [Unknown]
  - Blood urea increased [Unknown]
  - Drug ineffective [Unknown]
  - Liver disorder [Unknown]
  - Confusional state [Unknown]
  - Fear of injection [Unknown]
  - Cold sweat [Unknown]
  - Hepatic pain [Unknown]
  - Malaise [Recovered/Resolved]

NARRATIVE: CASE EVENT DATE: 20201001
